FAERS Safety Report 18158585 (Version 3)
Quarter: 2020Q3

REPORT INFORMATION
  Report Type: Report from Study
  Country: US (occurrence: US)
  Receive Date: 20200817
  Receipt Date: 20200902
  Transmission Date: 20201103
  Serious: Yes (Life-Threatening)
  Sender: FDA-Public Use
  Company Number: US-ROCHE-2658622

PATIENT
  Age: 37 Year
  Sex: Female
  Weight: 78 kg

DRUGS (54)
  1. ATORVASTATIN [Concomitant]
     Active Substance: ATORVASTATIN
     Indication: HYPERLIPIDAEMIA
     Dates: start: 20200710, end: 20200721
  2. ENOXAPARIN [Concomitant]
     Active Substance: ENOXAPARIN
     Dates: start: 20200724, end: 20200731
  3. FUROSEMIDE. [Concomitant]
     Active Substance: FUROSEMIDE
     Dates: start: 20200719, end: 20200720
  4. FUROSEMIDE. [Concomitant]
     Active Substance: FUROSEMIDE
     Dates: start: 20200726, end: 20200727
  5. PROPOFOL. [Concomitant]
     Active Substance: PROPOFOL
     Indication: MUSCLE RELAXANT THERAPY
  6. FLOLAN [Concomitant]
     Active Substance: EPOPROSTENOL SODIUM
     Indication: PULMONARY ARTERIAL HYPERTENSION
     Dates: start: 20200715, end: 20200716
  7. VASOPRESSIN. [Concomitant]
     Active Substance: VASOPRESSIN
     Dates: start: 20200715, end: 20200716
  8. METRONIDAZOLE. [Concomitant]
     Active Substance: METRONIDAZOLE
     Dates: start: 20200720, end: 20200722
  9. ACETAMINOPHEN. [Concomitant]
     Active Substance: ACETAMINOPHEN
     Indication: PYREXIA
     Dates: start: 20200727, end: 20200804
  10. LISINOPRIL. [Concomitant]
     Active Substance: LISINOPRIL
     Indication: HYPERTENSION
     Dates: start: 20200709, end: 20200709
  11. INSULIN REGULAR [Concomitant]
     Active Substance: INSULIN NOS
     Indication: DIABETES MELLITUS
     Dates: start: 20200712, end: 20200715
  12. INSULIN REGULAR [Concomitant]
     Active Substance: INSULIN NOS
     Dates: start: 20200723, end: 20200723
  13. ROCURONIUM [Concomitant]
     Active Substance: ROCURONIUM BROMIDE
     Dates: start: 20200712, end: 20200712
  14. ENOXAPARIN [Concomitant]
     Active Substance: ENOXAPARIN
     Indication: DEEP VEIN THROMBOSIS
     Dates: start: 20200712, end: 20200714
  15. HYDROCORTISONE. [Concomitant]
     Active Substance: HYDROCORTISONE
     Indication: SHOCK
     Dates: start: 20200715, end: 20200717
  16. IBUPROFEN. [Concomitant]
     Active Substance: IBUPROFEN
     Indication: PAIN
     Dates: start: 20200724, end: 20200724
  17. ONDANSETRON [Concomitant]
     Active Substance: ONDANSETRON
     Indication: VOMITING
  18. ROCURONIUM [Concomitant]
     Active Substance: ROCURONIUM BROMIDE
     Indication: MUSCLE RELAXANT THERAPY
     Dates: start: 20200712, end: 20200718
  19. NOREPINEPHRINE. [Concomitant]
     Active Substance: NOREPINEPHRINE
     Dates: start: 20200712, end: 20200712
  20. NOREPINEPHRINE. [Concomitant]
     Active Substance: NOREPINEPHRINE
     Dates: start: 20200714, end: 20200718
  21. MIDAZOLAM. [Concomitant]
     Active Substance: MIDAZOLAM
     Indication: SEDATION
     Dates: start: 20200712, end: 20200712
  22. SODIUM BICARBONATE. [Concomitant]
     Active Substance: SODIUM BICARBONATE
     Indication: ACIDOSIS
     Dates: start: 20200715, end: 20200715
  23. IBUPROFEN. [Concomitant]
     Active Substance: IBUPROFEN
     Indication: PYREXIA
  24. DOXYCYCLINE. [Concomitant]
     Active Substance: DOXYCYCLINE
     Dates: start: 20200728, end: 20200730
  25. TOCILIZUMAB. [Suspect]
     Active Substance: TOCILIZUMAB
     Indication: COVID-19 PNEUMONIA
     Dosage: DATE OF MOST RECENT DOSE OF TOCILIZUMAB PRIOR TO SAE ONSET 13/JUL/2020 AT 21.54
     Route: 042
     Dates: start: 20200713
  26. ACETAMINOPHEN. [Concomitant]
     Active Substance: ACETAMINOPHEN
     Dates: start: 20200727, end: 20200804
  27. INSULIN LISPRO [Concomitant]
     Active Substance: INSULIN LISPRO
     Indication: DIABETES MELLITUS
     Dosage: BEDTIME
     Dates: start: 20200709, end: 20200711
  28. INSULIN LISPRO [Concomitant]
     Active Substance: INSULIN LISPRO
     Dates: start: 20200724, end: 20200729
  29. INSULIN DETEMIR [Concomitant]
     Active Substance: INSULIN DETEMIR
     Indication: DIABETES MELLITUS
     Dates: start: 20200710, end: 20200726
  30. PROPOFOL. [Concomitant]
     Active Substance: PROPOFOL
     Indication: SEDATION
     Dates: start: 20200712, end: 20200712
  31. AMPICILLIN;SULBACTAM [Concomitant]
     Active Substance: AMPICILLIN SODIUM\SULBACTAM SODIUM
     Indication: KLEBSIELLA INFECTION
     Dates: start: 20200717, end: 20200720
  32. MIDAZOLAM. [Concomitant]
     Active Substance: MIDAZOLAM
     Dates: start: 20200714, end: 20200716
  33. KETAMINE [Concomitant]
     Active Substance: KETAMINE
     Indication: SEDATION
     Dates: start: 20200715, end: 20200719
  34. VANCOMYCIN [Concomitant]
     Active Substance: VANCOMYCIN
     Dates: start: 20200715, end: 20200721
  35. HYDRALAZINE [Concomitant]
     Active Substance: HYDRALAZINE HYDROCHLORIDE
     Indication: HYPERTENSION
     Dates: start: 20200722, end: 20200724
  36. DEXAMETHASONE. [Concomitant]
     Active Substance: DEXAMETHASONE
     Indication: COVID-19 PNEUMONIA
     Dates: start: 20200723, end: 20200724
  37. ALBUTEROL. [Concomitant]
     Active Substance: ALBUTEROL
     Dates: start: 20200728, end: 20200731
  38. INSULIN LISPRO [Concomitant]
     Active Substance: INSULIN LISPRO
     Dates: start: 20200709, end: 20200711
  39. NORCO [Concomitant]
     Active Substance: ACETAMINOPHEN\HYDROCODONE BITARTRATE
     Indication: PAIN
     Dates: start: 20200710, end: 20200711
  40. MORPHINE [Concomitant]
     Active Substance: MORPHINE
     Indication: PAIN
     Dates: start: 20200709, end: 20200709
  41. FAMOTIDINE. [Concomitant]
     Active Substance: FAMOTIDINE
     Indication: GASTROOESOPHAGEAL REFLUX DISEASE
     Dates: start: 20200712, end: 20200724
  42. MIDAZOLAM. [Concomitant]
     Active Substance: MIDAZOLAM
     Dates: start: 20200729, end: 20200729
  43. HEPARIN [Concomitant]
     Active Substance: HEPARIN SODIUM
     Indication: DEEP VEIN THROMBOSIS
     Dates: start: 20200715, end: 20200721
  44. CEFEPIME [Concomitant]
     Active Substance: CEFEPIME HYDROCHLORIDE
     Dates: start: 20200715, end: 20200722
  45. VANCOMYCIN [Concomitant]
     Active Substance: VANCOMYCIN
     Dates: start: 20200728, end: 20200730
  46. REMDESIVIR. [Suspect]
     Active Substance: REMDESIVIR
     Indication: COVID-19 PNEUMONIA
     Dosage: DATE OF MOST RECENT DOSE OF REMDESIVIR PRIOR TO SAE ONSET 16/JUL/2020 AT 21.27
     Route: 042
     Dates: start: 20200713
  47. ACETAMINOPHEN. [Concomitant]
     Active Substance: ACETAMINOPHEN
     Indication: PAIN
     Dates: start: 20200709, end: 20200713
  48. FENTANYL. [Concomitant]
     Active Substance: FENTANYL
     Indication: SEDATION
     Dates: start: 20200712, end: 20200723
  49. FUROSEMIDE. [Concomitant]
     Active Substance: FUROSEMIDE
     Indication: POLYURIA
     Dates: start: 20200712, end: 20200714
  50. LABETALOL [Concomitant]
     Active Substance: LABETALOL\LABETALOL HYDROCHLORIDE
     Indication: HYPERTENSION
     Dates: start: 20200722, end: 20200722
  51. CEFEPIME [Concomitant]
     Active Substance: CEFEPIME HYDROCHLORIDE
     Dates: start: 20200728, end: 20200730
  52. ONDANSETRON [Concomitant]
     Active Substance: ONDANSETRON
     Indication: NAUSEA
     Dates: start: 20200709, end: 20200712
  53. INSULIN REGULAR [Concomitant]
     Active Substance: INSULIN NOS
     Dates: start: 20200715, end: 20200724
  54. INSULIN REGULAR [Concomitant]
     Active Substance: INSULIN NOS
     Dates: start: 20200729, end: 20200730

REACTIONS (3)
  - Acute kidney injury [Recovered/Resolved]
  - Septic shock [Recovering/Resolving]
  - Cardio-respiratory arrest [Recovered/Resolved]

NARRATIVE: CASE EVENT DATE: 20200715
